FAERS Safety Report 20548970 (Version 3)
Quarter: 2022Q1

REPORT INFORMATION
  Report Type: Other
  Country: US (occurrence: None)
  Receive Date: 20220303
  Receipt Date: 20220324
  Transmission Date: 20220423
  Serious: Yes (Other)
  Sender: FDA-Public Use
  Company Number: US-ROCHE-3034753

PATIENT
  Sex: Female

DRUGS (2)
  1. ACTEMRA [Suspect]
     Active Substance: TOCILIZUMAB
     Indication: Autoimmune disorder
     Route: 058
  2. ACTEMRA [Suspect]
     Active Substance: TOCILIZUMAB

REACTIONS (2)
  - Visual impairment [Unknown]
  - Blindness unilateral [Unknown]
